FAERS Safety Report 4747013-8 (Version None)
Quarter: 2005Q3

REPORT INFORMATION
  Report Type: 
  Country: None (occurrence: None)
  Receive Date: 20050815
  Receipt Date: 20050801
  Transmission Date: 20060218
  Serious: Yes (Hospitalization)
  Sender: FDA-Public Use
  Company Number: US97095419A

PATIENT
  Age: 72 Year
  Sex: Female
  Weight: 52 kg

DRUGS (4)
  1. HUMALOG [Suspect]
     Indication: DIABETES MELLITUS
     Dates: start: 19900101
  2. FORTEO [Suspect]
     Indication: OSTEOPETROSIS
     Dates: start: 20050719
  3. INSULIN [Suspect]
     Indication: DIABETES MELLITUS
     Dosage: 8 U/ 2 DAY
     Dates: start: 19900101, end: 19980101
  4. SYNTHROID [Concomitant]

REACTIONS (11)
  - BLOOD GLUCOSE FLUCTUATION [None]
  - BONE DENSITY DECREASED [None]
  - CYSTITIS [None]
  - HERNIA REPAIR [None]
  - HYPOGLYCAEMIA [None]
  - INJECTION SITE HAEMORRHAGE [None]
  - INJECTION SITE PAIN [None]
  - NAIL INFECTION [None]
  - ONYCHALGIA [None]
  - PHARMACEUTICAL PRODUCT COMPLAINT [None]
  - RECTOCELE [None]
